FAERS Safety Report 5143492-5 (Version None)
Quarter: 2006Q4

REPORT INFORMATION
  Report Type: 
  Country: None (occurrence: None)
  Receive Date: 20061103
  Receipt Date: 20061018
  Transmission Date: 20070319
  Serious: Yes (Hospitalization)
  Sender: FDA-Public Use
  Company Number: JP-JPN-A200604338

PATIENT
  Age: 82 Year
  Sex: Male
  Weight: 53 kg

DRUGS (7)
  1. PAXIL [Suspect]
     Indication: DEPRESSION
     Route: 048
     Dates: start: 20040128, end: 20061017
  2. DOGMATYL [Suspect]
     Indication: DEPRESSION
     Dosage: 150MG PER DAY
     Route: 048
     Dates: start: 20040209, end: 20061017
  3. ALLOPURINOL [Concomitant]
     Dosage: 200MG PER DAY
     Route: 048
     Dates: start: 20050622, end: 20061017
  4. KREMEZIN [Concomitant]
     Route: 048
     Dates: start: 20060726, end: 20061017
  5. PARIET [Concomitant]
     Route: 048
     Dates: start: 20060908, end: 20061017
  6. CALBLOCK [Concomitant]
     Indication: HYPERTENSION
     Dosage: 8MG PER DAY
     Route: 048
     Dates: start: 20061004, end: 20061017
  7. ANPLAG [Concomitant]
     Indication: ARTERIOSCLEROSIS OBLITERANS
     Dosage: 300MG PER DAY
     Route: 048
     Dates: start: 20060721

REACTIONS (16)
  - ABASIA [None]
  - ABNORMAL BEHAVIOUR [None]
  - ANAEMIA [None]
  - BLOOD CREATINE PHOSPHOKINASE INCREASED [None]
  - COMMUNICATION DISORDER [None]
  - CONFUSIONAL STATE [None]
  - FAECAL INCONTINENCE [None]
  - FEELING ABNORMAL [None]
  - INSOMNIA [None]
  - LOGORRHOEA [None]
  - MANIA [None]
  - RENAL FAILURE [None]
  - RHABDOMYOLYSIS [None]
  - SEROTONIN SYNDROME [None]
  - SPEECH DISORDER [None]
  - URINARY INCONTINENCE [None]
